FAERS Safety Report 14572565 (Version 12)
Quarter: 2021Q1

REPORT INFORMATION
  Report Type: Spontaneous
  Country: CA (occurrence: CA)
  Receive Date: 20180226
  Receipt Date: 20210329
  Transmission Date: 20210419
  Serious: Yes (Other)
  Sender: FDA-Public Use
  Company Number: CA-PFIZER INC-2018006349

PATIENT
  Age: 68 Year
  Sex: Female
  Weight: 115 kg

DRUGS (11)
  1. XELJANZ [Suspect]
     Active Substance: TOFACITINIB CITRATE
     Dosage: 5 MG, 1X/DAY
     Route: 048
     Dates: start: 201712
  2. PENTASA [Concomitant]
     Active Substance: MESALAMINE
     Dosage: 40 MG, UNK
     Route: 048
  3. WELLBUTRIN [Concomitant]
     Active Substance: BUPROPION HYDROCHLORIDE
     Dosage: 450 MG, 1X/DAY
  4. XELJANZ [Suspect]
     Active Substance: TOFACITINIB CITRATE
     Dosage: 5 MG, 1X/DAY
     Route: 048
     Dates: start: 201801
  5. PREDNISONE. [Concomitant]
     Active Substance: PREDNISONE
     Dosage: 10 MG, DAILY
  6. XELJANZ [Suspect]
     Active Substance: TOFACITINIB CITRATE
     Dosage: 5 MG, 1X/DAY
     Route: 048
     Dates: start: 20171231
  7. BISOPROLOL [Concomitant]
     Active Substance: BISOPROLOL
     Dosage: 2.5 MG, 2X/DAY
  8. XELJANZ [Suspect]
     Active Substance: TOFACITINIB CITRATE
     Dosage: 5 MG, 1X/DAY
     Route: 048
     Dates: start: 20171231, end: 2021
  9. QUETIAPINE. [Concomitant]
     Active Substance: QUETIAPINE
     Dosage: 300 MG, 1X/DAY
  10. SYNTHROID [Concomitant]
     Active Substance: LEVOTHYROXINE SODIUM
     Dosage: 0.125 MG, 1X/DAY
  11. XELJANZ [Suspect]
     Active Substance: TOFACITINIB CITRATE
     Indication: RHEUMATOID ARTHRITIS
     Dosage: 5 MG, 2X/DAY
     Route: 048
     Dates: start: 201712, end: 201712

REACTIONS (12)
  - Sputum discoloured [Recovered/Resolved]
  - Fatigue [Recovered/Resolved]
  - Infection [Recovered/Resolved]
  - Arthritis [Unknown]
  - Intentional product misuse [Unknown]
  - Glomerular filtration rate decreased [Unknown]
  - Urinary tract infection [Recovered/Resolved]
  - Renal disorder [Unknown]
  - COVID-19 [Unknown]
  - Drug ineffective [Unknown]
  - Cellulitis [Recovered/Resolved]
  - Fibromyalgia [Unknown]

NARRATIVE: CASE EVENT DATE: 20191007
